FAERS Safety Report 10056232 (Version 2)
Quarter: 2014Q2

REPORT INFORMATION
  Report Type: Spontaneous
  Country: CH (occurrence: CH)
  Receive Date: 20140403
  Receipt Date: 20140418
  Transmission Date: 20141212
  Serious: Yes (Hospitalization)
  Sender: FDA-Public Use
  Company Number: CH-ASTRAZENECA-2014SE22018

PATIENT
  Age: 9479 Day
  Sex: Male

DRUGS (5)
  1. SEROQUEL XR [Suspect]
     Indication: BIPOLAR DISORDER
     Dosage: 50 AND 300 MG FOR SEVERAL YEARS
     Route: 048
  2. SEROQUEL XR [Suspect]
     Indication: BIPOLAR DISORDER
     Route: 048
     Dates: start: 20140218
  3. TEMESTA [Concomitant]
  4. LITHIUM [Concomitant]
  5. CIPRALEX [Concomitant]

REACTIONS (1)
  - Urinary retention [Not Recovered/Not Resolved]
